FAERS Safety Report 9772510 (Version 1)
Quarter: 2013Q4

REPORT INFORMATION
  Report Type: Spontaneous
  Country: GB (occurrence: GB)
  Receive Date: 20131219
  Receipt Date: 20131219
  Transmission Date: 20140711
  Serious: Yes (Hospitalization, Other)
  Sender: FDA-Public Use
  Company Number: GB-TEVA-450579ISR

PATIENT
  Sex: 0

DRUGS (7)
  1. MYCOPHENOLIC ACID [Suspect]
     Dosage: 1000 MILLIGRAM DAILY;
     Route: 065
  2. MYCOPHENOLIC ACID [Suspect]
     Dosage: 1500 MILLIGRAM DAILY;
     Route: 065
  3. PREDNISOLONE [Suspect]
     Indication: PRODUCT USED FOR UNKNOWN INDICATION
     Route: 065
  4. INCIVO [Suspect]
     Indication: HEPATITIS C
     Route: 048
  5. RIBAVIRIN [Suspect]
     Indication: HEPATITIS C
     Route: 065
  6. RIBAVIRIN [Suspect]
     Indication: HEPATITIS C
  7. INTERFERON [Suspect]
     Indication: HEPATITIS C
     Route: 065

REACTIONS (3)
  - Blood count abnormal [Unknown]
  - Neutrophil count decreased [Unknown]
  - Off label use [Recovered/Resolved]
